FAERS Safety Report 10969993 (Version 1)
Quarter: 2015Q1

REPORT INFORMATION
  Report Type: Spontaneous
  Country: US (occurrence: None)
  Receive Date: 20150330
  Receipt Date: 20150330
  Transmission Date: 20150721
  Serious: No
  Sender: FDA-Public Use
  Company Number: None

PATIENT
  Age: 16 Year
  Sex: Male
  Weight: 83.92 kg

DRUGS (4)
  1. ALBUTERAL [Concomitant]
     Active Substance: ALBUTEROL
  2. SINGULAIR [Suspect]
     Active Substance: MONTELUKAST SODIUM
     Indication: RHINITIS ALLERGIC
     Dosage: 1 PILL, AT BEDTIME, TAKEN BY MOUTH
     Route: 048
     Dates: start: 20141230, end: 20150326
  3. SINGULAIR [Suspect]
     Active Substance: MONTELUKAST SODIUM
     Indication: ASTHMA
     Dosage: 1 PILL, AT BEDTIME, TAKEN BY MOUTH
     Route: 048
     Dates: start: 20141230, end: 20150326
  4. OVAR [Concomitant]

REACTIONS (3)
  - Abnormal dreams [None]
  - Suicidal ideation [None]
  - Depression [None]

NARRATIVE: CASE EVENT DATE: 20150325
